FAERS Safety Report 7986264-6 (Version None)
Quarter: 2011Q4

REPORT INFORMATION
  Report Type: 
  Country: None (occurrence: None)
  Receive Date: 20111216
  Receipt Date: 20110207
  Transmission Date: 20120403
  Serious: No
  Sender: FDA-Public Use
  Company Number: US-BRISTOL-MYERS SQUIBB COMPANY-15500408

PATIENT
  Age: 16 Year
  Sex: Male

DRUGS (3)
  1. ABILIFY [Suspect]
     Indication: BIPOLAR DISORDER
     Dosage: REDUCED TO 10MGQHS-12/20/10,15QHS-3/09,30QHS,7.5QHS-2/2011
     Route: 048
     Dates: start: 20080201
  2. ABILIFY [Suspect]
     Indication: MOOD SWINGS
     Dosage: REDUCED TO 10MGQHS-12/20/10,15QHS-3/09,30QHS,7.5QHS-2/2011
     Route: 048
     Dates: start: 20080201
  3. ABILIFY [Suspect]
     Indication: IRRITABILITY
     Dosage: REDUCED TO 10MGQHS-12/20/10,15QHS-3/09,30QHS,7.5QHS-2/2011
     Route: 048
     Dates: start: 20080201

REACTIONS (1)
  - MUSCLE CONTRACTIONS INVOLUNTARY [None]
